FAERS Safety Report 8609294-X (Version None)
Quarter: 2012Q3

REPORT INFORMATION
  Report Type: 
  Country: None (occurrence: None)
  Receive Date: 20120821
  Receipt Date: 20120814
  Transmission Date: 20120928
  Serious: Yes (Other)
  Sender: FDA-Public Use
  Company Number: PHEH2012US014980

PATIENT
  Sex: Female

DRUGS (2)
  1. POTASSIUM CITRATE [Concomitant]
     Dosage: UNK UKN, UNK
  2. LOPRESSOR [Suspect]
     Dosage: 50 MG, UNK

REACTIONS (1)
  - NEPHROLITHIASIS [None]
